FAERS Safety Report 7549734-0 (Version None)
Quarter: 2011Q2

REPORT INFORMATION
  Report Type: 
  Country: None (occurrence: None)
  Receive Date: 20110615
  Receipt Date: 20110607
  Transmission Date: 20111010
  Serious: Yes (Hospitalization, Other)
  Sender: FDA-Public Use
  Company Number: GB-TEVA-100#03#2009-00038

PATIENT
  Age: 47 Year
  Sex: Female
  Weight: 102 kg

DRUGS (7)
  1. CLONAZEPAM [Concomitant]
     Indication: PSYCHOTIC DISORDER
     Dosage: 1MG IN THE MORNING + 2 MG AT NIGHT
  2. DEPAKOTE [Concomitant]
     Indication: AFFECTIVE DISORDER
     Dosage: 1000 MG TWICE DAILY
  3. LAMOTRIGINE [Concomitant]
     Indication: AFFECTIVE DISORDER
     Dosage: 150 MG TWICE DAILY
  4. SERTRALINE HYDROCHLORIDE [Suspect]
     Indication: DEPRESSION
     Dosage: 200 MG, QD
     Route: 048
  5. CLOZARIL [Suspect]
     Indication: SCHIZOPHRENIA
     Dosage: 150 MG, BID
     Route: 048
     Dates: start: 20080909, end: 20081005
  6. QUETIAPINE [Concomitant]
     Indication: PSYCHOTIC DISORDER
     Dosage: 200 MG TWICE DAILY
  7. SERETIDE [Concomitant]
     Indication: PRODUCT USED FOR UNKNOWN INDICATION
     Dosage: 2 PUFFS DAILY

REACTIONS (9)
  - CARDIOMYOPATHY [None]
  - OXYGEN SATURATION DECREASED [None]
  - LOWER RESPIRATORY TRACT INFECTION [None]
  - TACHYCARDIA [None]
  - BODY TEMPERATURE INCREASED [None]
  - TACHYPNOEA [None]
  - MONOCYTE COUNT INCREASED [None]
  - C-REACTIVE PROTEIN INCREASED [None]
  - ASTHMA [None]
